FAERS Safety Report 8864632 (Version 1)
Quarter: 2012Q4

REPORT INFORMATION
  Report Type: 
  Country: US (occurrence: US)
  Receive Date: 20121024
  Receipt Date: 20121024
  Transmission Date: 20130627
  Serious: No
  Sender: FDA-Public Use
  Company Number: US-AMGEN-USASP2011068531

PATIENT
  Age: 69 Year
  Sex: Female

DRUGS (2)
  1. ENBREL [Suspect]
     Indication: RHEUMATOID ARTHRITIS
     Dates: start: 19990101, end: 2011
  2. ENBREL [Suspect]
     Dates: start: 201004

REACTIONS (2)
  - Arthropod bite [Not Recovered/Not Resolved]
  - Thrombosis [Not Recovered/Not Resolved]
